FAERS Safety Report 23819942 (Version 1)
Quarter: 2024Q2

REPORT INFORMATION
  Report Type: Other
  Country: CN (occurrence: None)
  Receive Date: 20240506
  Receipt Date: 20240506
  Transmission Date: 20240716
  Serious: Yes (Other)
  Sender: FDA-Public Use
  Company Number: CN-ROCHE-3517240

PATIENT

DRUGS (4)
  1. RITUXIMAB [Suspect]
     Active Substance: RITUXIMAB
     Indication: B-cell type acute leukaemia
     Route: 042
  2. FLUDARABINE [Concomitant]
     Active Substance: FLUDARABINE PHOSPHATE
     Dosage: ON DAYS -5 TO -3
  3. CYCLOPHOSPHAMIDE [Concomitant]
     Active Substance: CYCLOPHOSPHAMIDE
     Dosage: ON DAYS -5 TO -3
  4. DECITABINE [Concomitant]
     Active Substance: DECITABINE
     Dosage: IN 3 DAYS FROM DAY -6 TO -4

REACTIONS (4)
  - Cytokine release syndrome [Unknown]
  - Haematotoxicity [Unknown]
  - Headache [Unknown]
  - Infection [Unknown]
